FAERS Safety Report 25659267 (Version 1)
Quarter: 2025Q3

REPORT INFORMATION
  Report Type: Spontaneous
  Country: JP (occurrence: JP)
  Receive Date: 20250808
  Receipt Date: 20250808
  Transmission Date: 20251020
  Serious: Yes (Death, Other)
  Sender: BOEHRINGER INGELHEIM
  Company Number: None

PATIENT
  Age: 89 Year
  Sex: Male
  Weight: 43 kg

DRUGS (14)
  1. LINAGLIPTIN [Suspect]
     Active Substance: LINAGLIPTIN
     Indication: Diabetes mellitus
     Route: 048
  2. LUSEOGLIFLOZIN [Suspect]
     Active Substance: LUSEOGLIFLOZIN
     Indication: Diabetes mellitus
     Route: 048
     Dates: start: 20221018, end: 20240524
  3. TU-100 [Concomitant]
     Active Substance: ASIAN GINSENG\GINGER\ZANTHOXYLUM PIPERITUM FRUIT PULP
  4. BENSERAZIDE HYDROCHLORIDE\LEVODOPA [Concomitant]
     Active Substance: BENSERAZIDE HYDROCHLORIDE\LEVODOPA
  5. ENTACAPONE [Concomitant]
     Active Substance: ENTACAPONE
  6. CARBOCYSTEINE [Concomitant]
     Active Substance: CARBOCYSTEINE
  7. TAMSULOSIN HYDROCHLORIDE [Concomitant]
     Active Substance: TAMSULOSIN HYDROCHLORIDE
  8. FEBUXOSTAT [Concomitant]
     Active Substance: FEBUXOSTAT
  9. SPIRONOLACTONE [Concomitant]
     Active Substance: SPIRONOLACTONE
  10. LEVOTHYROXINE SODIUM [Concomitant]
     Active Substance: LEVOTHYROXINE SODIUM
     Route: 001
  11. ROPINIROLE HYDROCHLORIDE [Concomitant]
     Active Substance: ROPINIROLE HYDROCHLORIDE
  12. POTASSIUM GLUCONATE [Concomitant]
     Active Substance: POTASSIUM GLUCONATE
  13. FUROSEMIDE [Concomitant]
     Active Substance: FUROSEMIDE
  14. ELIQUIS [Concomitant]
     Active Substance: APIXABAN

REACTIONS (5)
  - Respiratory failure [Fatal]
  - Lung infiltration [Fatal]
  - Cardiac failure chronic [Fatal]
  - Pneumothorax [Fatal]
  - Hypoglycaemia [Recovering/Resolving]

NARRATIVE: CASE EVENT DATE: 20240525
